FAERS Safety Report 21595591 (Version 4)
Quarter: 2023Q4

REPORT INFORMATION
  Report Type: Spontaneous
  Country: US (occurrence: US)
  Receive Date: 20221115
  Receipt Date: 20231025
  Transmission Date: 20240110
  Serious: No
  Sender: FDA-Public Use
  Company Number: US-PFIZER INC-2020265291

PATIENT
  Age: 35 Year
  Sex: Female

DRUGS (4)
  1. EUCRISA [Suspect]
     Active Substance: CRISABOROLE
     Indication: Dermatitis
     Dosage: APPLY A THIN LAYER TO AFFECTED AREA OF HANDS TWICE DAILY AS DIRECTED
     Route: 061
  2. EUCRISA [Suspect]
     Active Substance: CRISABOROLE
     Indication: Dermatitis atopic
  3. EUCRISA [Suspect]
     Active Substance: CRISABOROLE
     Indication: Dermatitis
     Dosage: APPLY A THIN LAYER TO AFFECTED AREA OF HANDS TWICE DAILY AS DIRECTED
     Route: 061
  4. EUCRISA [Suspect]
     Active Substance: CRISABOROLE
     Indication: Dermatitis atopic
     Dosage: UNK, 3X/DAY (APPLY THIN LAYER THREE TIMES DAILY TO ARMS AND HANDS)
     Route: 061

REACTIONS (2)
  - Off label use [Unknown]
  - Condition aggravated [Unknown]
